FAERS Safety Report 26000826 (Version 1)
Quarter: 2025Q4

REPORT INFORMATION
  Report Type: Spontaneous
  Country: US (occurrence: US)
  Receive Date: 20251105
  Receipt Date: 20251105
  Transmission Date: 20260118
  Serious: No
  Sender: ANI
  Company Number: US-ANIPHARMA-2025-US-043706

PATIENT
  Sex: Female

DRUGS (1)
  1. CORTICOTROPIN [Suspect]
     Active Substance: CORTICOTROPIN
     Indication: Glaucoma
     Dosage: 80 U/ML EVERY 72 HOURS
     Route: 058
     Dates: start: 202508

REACTIONS (3)
  - Irritability [Unknown]
  - Aggression [Unknown]
  - Product use in unapproved indication [Not Recovered/Not Resolved]
